FAERS Safety Report 8380162-4 (Version None)
Quarter: 2012Q2

REPORT INFORMATION
  Report Type: 
  Country: None (occurrence: None)
  Receive Date: 20120523
  Receipt Date: 20120514
  Transmission Date: 20120825
  Serious: Yes (Hospitalization)
  Sender: FDA-Public Use
  Company Number: FR-TEVA-338754ISR

PATIENT
  Sex: Male

DRUGS (5)
  1. VINCRISTINE [Suspect]
     Indication: ACUTE LYMPHOCYTIC LEUKAEMIA
     Route: 042
     Dates: start: 20110614, end: 20120227
  2. DAUNORUBICIN HYDROCHLORIDE [Suspect]
     Indication: ACUTE LYMPHOCYTIC LEUKAEMIA
     Dosage: 39.9 MILLIGRAM;
     Route: 042
     Dates: start: 20110614, end: 20120227
  3. ROCEPHIN [Suspect]
     Indication: OSTEOMYELITIS
     Dosage: 2 MILLIGRAM;
     Route: 042
     Dates: start: 20120201, end: 20120408
  4. KIDROLASE [Suspect]
     Dosage: 7980 IU (INTERNATIONAL UNIT); UNIT DOSE: 6000 IU/M2
     Route: 030
     Dates: start: 20110615, end: 20120227
  5. BACTRIM [Suspect]
     Indication: PROPHYLAXIS
     Dosage: .4286 DOSAGE FORMS;
     Route: 048
     Dates: start: 20110614, end: 20120312

REACTIONS (1)
  - CYTOLYTIC HEPATITIS [None]
